FAERS Safety Report 6554731-8 (Version None)
Quarter: 2010Q1

REPORT INFORMATION
  Report Type: 
  Country: None (occurrence: None)
  Receive Date: 20100125
  Receipt Date: 20100113
  Transmission Date: 20100710
  Serious: Yes (Death, Hospitalization)
  Sender: FDA-Public Use
  Company Number: PI-04446

PATIENT
  Sex: Female

DRUGS (1)
  1. CHLORAPREP [Suspect]
     Indication: PREOPERATIVE CARE
     Dosage: 3ML, ONCE, TOPICAL
     Route: 061
     Dates: start: 20091225

REACTIONS (3)
  - ERYTHEMA [None]
  - EXCORIATION [None]
  - STAPHYLOCOCCAL INFECTION [None]
